FAERS Safety Report 8903477 (Version 1)
Quarter: 2012Q4

REPORT INFORMATION
  Report Type: 
  Country: MX (occurrence: MX)
  Receive Date: 20121113
  Receipt Date: 20121113
  Transmission Date: 20130627
  Serious: Yes (Hospitalization, Other)
  Sender: FDA-Public Use
  Company Number: PHHY2012MX104456

PATIENT
  Sex: Female

DRUGS (1)
  1. EXFORGE HCT [Suspect]
     Indication: HYPERTENSION
     Dosage: 0.5 DF, (160 mg vals, 5 mg amlo, 12,5 mg hydro) daily
     Route: 048
     Dates: start: 200901

REACTIONS (2)
  - Gastrointestinal motility disorder [Recovered/Resolved]
  - Wrong technique in drug usage process [Unknown]
